FAERS Safety Report 4373728-X (Version None)
Quarter: 2004Q2

REPORT INFORMATION
  Report Type: 
  Country: None (occurrence: None)
  Receive Date: 20040607
  Receipt Date: 20040607
  Transmission Date: 20050107
  Serious: Yes (Other)
  Sender: FDA-Public Use
  Company Number: None

PATIENT
  Age: 30 Year
  Sex: Female
  Weight: 77.1115 kg

DRUGS (2)
  1. MORPHINE [Suspect]
     Indication: ABDOMINAL PAIN
     Dosage: 3 MG IV
     Route: 042
     Dates: start: 20031105, end: 20031105
  2. DS/NS [Concomitant]

REACTIONS (3)
  - INFUSION SITE RASH [None]
  - RASH ERYTHEMATOUS [None]
  - RASH PRURITIC [None]
